FAERS Safety Report 10951259 (Version 1)
Quarter: 2015Q1

REPORT INFORMATION
  Report Type: Spontaneous
  Country: FR (occurrence: FR)
  Receive Date: 20150324
  Receipt Date: 20150324
  Transmission Date: 20150721
  Serious: Yes (Hospitalization)
  Sender: FDA-Public Use
  Company Number: PHHY2015FR031134

PATIENT
  Age: 79 Year
  Sex: Male

DRUGS (12)
  1. SINEMET [Interacting]
     Active Substance: CARBIDOPA\LEVODOPA
     Dosage: 110 MG (100 MG AND 10 MG),
     Route: 048
     Dates: start: 20141213
  2. APOKINON [Interacting]
     Active Substance: APOMORPHINE
     Dosage: 24 MG, 1 MG PER HOUR
     Route: 058
     Dates: start: 20141215, end: 20141218
  3. APROVEL [Interacting]
     Active Substance: IRBESARTAN
     Indication: PRODUCT USED FOR UNKNOWN INDICATION
     Dosage: 300 MG, QD (0-0-1), BERFORE HOSPITALIZAION
     Route: 048
     Dates: end: 20141222
  4. LEPONEX [Interacting]
     Active Substance: CLOZAPINE
     Dosage: 0.75 DF, EVENING
     Route: 065
     Dates: start: 20141224
  5. APOKINON [Interacting]
     Active Substance: APOMORPHINE
     Indication: DYSKINESIA
     Dosage: 24 MG, 1 MG PER HOUR
     Route: 058
     Dates: start: 20141205, end: 20141213
  6. APOKINON [Interacting]
     Active Substance: APOMORPHINE
     Dosage: 24 MG, 1.5 MG PER HOUR
     Route: 058
     Dates: start: 20141219, end: 20141219
  7. APOKINON [Interacting]
     Active Substance: APOMORPHINE
     Dosage: 24 MG,  1 MG PER HOUR
     Route: 058
     Dates: start: 20141223
  8. LEPONEX [Suspect]
     Active Substance: CLOZAPINE
     Indication: HALLUCINATION
     Dosage: 1.25 DF, (0.25 DF MORNING AND 1 DF IN EVENING)
     Route: 065
     Dates: start: 201412, end: 201412
  9. LEPONEX [Interacting]
     Active Substance: CLOZAPINE
     Dosage: 1 DF, IN EVENING
     Route: 065
     Dates: start: 201412, end: 20141223
  10. APOKINON [Interacting]
     Active Substance: APOMORPHINE
     Dosage: 24 MG,  1.7 MG PER HOUR
     Route: 058
     Dates: start: 20141220, end: 20141222
  11. EXELON PATCH [Interacting]
     Active Substance: RIVASTIGMINE
     Indication: HALLUCINATION
     Dosage: 4.6 MG, DURING 24 HOURS
     Route: 062
     Dates: start: 20141213
  12. SINEMET [Interacting]
     Active Substance: CARBIDOPA\LEVODOPA
     Indication: PARKINSON^S DISEASE
     Dosage: 110 MG (100 MG AND 10 MG), BEFORE HOSPITALIZATION
     Route: 048
     Dates: end: 20141210

REACTIONS (4)
  - Drug interaction [Unknown]
  - Pulmonary embolism [Recovered/Resolved]
  - Malaise [Recovered/Resolved]
  - Orthostatic hypotension [Recovered/Resolved]

NARRATIVE: CASE EVENT DATE: 20141222
